FAERS Safety Report 7478258-4 (Version None)
Quarter: 2011Q2

REPORT INFORMATION
  Report Type: 
  Country: None (occurrence: None)
  Receive Date: 20110513
  Receipt Date: 20110504
  Transmission Date: 20111010
  Serious: Yes (Other)
  Sender: FDA-Public Use
  Company Number: US-ASTRAZENECA-2011SE26981

PATIENT
  Age: 45 Year
  Sex: Female

DRUGS (3)
  1. PRILOSEC [Suspect]
     Route: 048
  2. CRESTOR [Suspect]
     Route: 048
  3. NEXIUM [Concomitant]

REACTIONS (4)
  - ULCER [None]
  - OROPHARYNGEAL SURGERY [None]
  - BURN OESOPHAGEAL [None]
  - HERNIA [None]
